FAERS Safety Report 8322207-3 (Version None)
Quarter: 2012Q2

REPORT INFORMATION
  Report Type: 
  Country: None (occurrence: None)
  Receive Date: 20120426
  Receipt Date: 20120412
  Transmission Date: 20120825
  Serious: Yes (Death, Other)
  Sender: FDA-Public Use
  Company Number: 2012MA005025

PATIENT
  Age: 58 Year
  Sex: Male

DRUGS (1)
  1. GEMCITABINE HYDROCHLORIDE [Suspect]
     Indication: SQUAMOUS CELL CARCINOMA
     Dosage: 1000 MG/ M**2; QW; IV
     Route: 042

REACTIONS (7)
  - MUSCLE SWELLING [None]
  - MYALGIA [None]
  - MUSCULOSKELETAL CHEST PAIN [None]
  - METASTASES TO CENTRAL NERVOUS SYSTEM [None]
  - MUSCLE NECROSIS [None]
  - LUNG NEOPLASM [None]
  - PLEURITIC PAIN [None]
